FAERS Safety Report 18455835 (Version 6)
Quarter: 2021Q1

REPORT INFORMATION
  Report Type: Report from Study
  Country: CN (occurrence: CN)
  Receive Date: 20201102
  Receipt Date: 20210201
  Transmission Date: 20210419
  Serious: Yes (Hospitalization)
  Sender: FDA-Public Use
  Company Number: CN-ROCHE-2704022

PATIENT
  Age: 47 Year
  Sex: Female
  Weight: 52 kg

DRUGS (25)
  1. COMPOUND PLATYCODON [Concomitant]
     Indication: COUGH
     Dates: start: 20200507
  2. PALONOSETRON HYDROCHLORIDE. [Concomitant]
     Active Substance: PALONOSETRON HYDROCHLORIDE
     Dates: start: 20201030, end: 20201030
  3. COMPOUND PLATYCODON [Concomitant]
     Indication: COUGH
  4. BEVACIZUMAB. [Suspect]
     Active Substance: BEVACIZUMAB
     Indication: NON-SMALL CELL LUNG CANCER
     Dosage: DAY 1 OF EACH 21?DAY CYCLE.?ON 09/OCT/2020, SHE RECEIVED MOST RECENT DOSE (795 MG) OF BEVACIZUMAB PR
     Route: 042
     Dates: start: 20200525
  5. RACEANISODAMINE HYDROCHLORIDE [Concomitant]
     Dates: start: 20201029, end: 20201029
  6. LANSOPRAZOLE. [Concomitant]
     Active Substance: LANSOPRAZOLE
     Dates: start: 20200916
  7. PALONOSETRON HYDROCHLORIDE. [Concomitant]
     Active Substance: PALONOSETRON HYDROCHLORIDE
     Indication: VOMITING
     Dates: start: 20201009, end: 20201009
  8. OMEPRAZOLE SODIUM [Concomitant]
     Active Substance: OMEPRAZOLE SODIUM
     Dates: start: 20201029, end: 20201113
  9. PEGYLATED RECOMBINANT HUMAN GRANULOCYTE COLONY STIMULATING FACTOR [Concomitant]
     Dates: start: 20201011, end: 20201011
  10. ATEZOLIZUMAB. [Suspect]
     Active Substance: ATEZOLIZUMAB
     Indication: NON-SMALL CELL LUNG CANCER
     Dosage: DAY 1 OF EACH 21?DAY CYCLE UNTIL UNACCEPTABLE TOXICITY OR LOSS OF CLINICAL BENEFIT?ON 09/OCT/2020, S
     Route: 042
     Dates: start: 20200525
  11. CARBOPLATIN. [Suspect]
     Active Substance: CARBOPLATIN
     Indication: NON-SMALL CELL LUNG CANCER
     Dosage: INITIAL TARGET AUC OF 6 MG/ML/MIN.?ON 05/AUG/2020, SHE RECEIVED MOST RECENT DOSE (554 MG) OF CARBOPL
     Route: 042
     Dates: start: 20200525
  12. PARACETAMOL;TRAMADOL [Concomitant]
     Active Substance: ACETAMINOPHEN\TRAMADOL
     Indication: PAIN
     Dates: start: 20201029, end: 20201113
  13. MORPHINE HYDROCHLORIDE [Concomitant]
     Active Substance: MORPHINE HYDROCHLORIDE
     Dates: start: 20201030, end: 20201113
  14. MANNITOL. [Concomitant]
     Active Substance: MANNITOL
     Dates: start: 20201030, end: 20201113
  15. AMBROXOL HYDROCHLORIDE [Concomitant]
     Active Substance: AMBROXOL HYDROCHLORIDE
     Indication: PRODUCTIVE COUGH
  16. OMEPRAZOLE SODIUM [Concomitant]
     Active Substance: OMEPRAZOLE SODIUM
     Dates: start: 20201009, end: 20201009
  17. AMBROXOL HYDROCHLORIDE [Concomitant]
     Active Substance: AMBROXOL HYDROCHLORIDE
     Indication: COUGH
     Dates: start: 20201027, end: 20201112
  18. LACTULOSE. [Concomitant]
     Active Substance: LACTULOSE
     Indication: CONSTIPATION
     Dates: start: 20201031, end: 20201031
  19. DEXAMETHASONE ACETATE [Concomitant]
     Active Substance: DEXAMETHASONE ACETATE
     Indication: ALLERGY PROPHYLAXIS
     Route: 048
     Dates: start: 20201008, end: 20201011
  20. LIDOCAINE HYDROCHLORIDE. [Concomitant]
     Active Substance: LIDOCAINE HYDROCHLORIDE
     Indication: LOCAL ANAESTHESIA
     Dates: start: 20201028, end: 20201028
  21. BUCINNAZINE HYDROCHLORIDE [Concomitant]
     Dates: start: 20201030, end: 20201030
  22. HEPARIN SODIUM. [Concomitant]
     Active Substance: HEPARIN SODIUM
     Dates: start: 20201027, end: 20201028
  23. PEMETREXED. [Suspect]
     Active Substance: PEMETREXED
     Indication: NON-SMALL CELL LUNG CANCER
     Dosage: ON 09/OCT/2020, SHE RECEIVED MOST RECENT DOSE (624 MG) OF STUDY DRUG PRIOR TO AE/SAE ONSET
     Route: 042
     Dates: start: 20200525
  24. LANSOPRAZOLE. [Concomitant]
     Active Substance: LANSOPRAZOLE
     Dates: start: 20200805
  25. METOCLOPRAMIDE DIHYDROCHLORIDE [Concomitant]
     Indication: VOMITING
     Dates: start: 20201030, end: 20201030

REACTIONS (1)
  - Epistaxis [Recovered/Resolved]

NARRATIVE: CASE EVENT DATE: 20201023
